FAERS Safety Report 8614066-6 (Version None)
Quarter: 2012Q3

REPORT INFORMATION
  Report Type: 
  Country: None (occurrence: None)
  Receive Date: 20120823
  Receipt Date: 20120811
  Transmission Date: 20120928
  Serious: Yes (Life-Threatening, Hospitalization, Other)
  Sender: FDA-Public Use
  Company Number: FR-PAR PHARMACEUTICAL, INC-2012SCPR004575

PATIENT

DRUGS (2)
  1. BISOPROLOL FUMARATE [Suspect]
     Indication: PRODUCT USED FOR UNKNOWN INDICATION
     Dosage: UNK, UNKNOWN
     Route: 048
  2. VERAPAMIL EXTENDED-RELEASE [Suspect]
     Indication: PRODUCT USED FOR UNKNOWN INDICATION
     Dosage: 14.4 G, SINGLE
     Route: 048

REACTIONS (12)
  - COMA SCALE ABNORMAL [None]
  - INTENTIONAL OVERDOSE [None]
  - RENAL FAILURE ACUTE [None]
  - SINUS BRADYCARDIA [None]
  - TOXICITY TO VARIOUS AGENTS [None]
  - CARDIOGENIC SHOCK [None]
  - LEFT VENTRICULAR DYSFUNCTION [None]
  - HAEMODYNAMIC INSTABILITY [None]
  - MULTI-ORGAN FAILURE [None]
  - ELECTROCARDIOGRAM QT PROLONGED [None]
  - BLOOD LACTIC ACID INCREASED [None]
  - METABOLIC ACIDOSIS [None]
